FAERS Safety Report 8118000-7 (Version None)
Quarter: 2012Q1

REPORT INFORMATION
  Report Type: 
  Country: None (occurrence: None)
  Receive Date: 20120207
  Receipt Date: 20120202
  Transmission Date: 20120608
  Serious: Yes (Disabling)
  Sender: FDA-Public Use
  Company Number: DE-JNJFOC-20111200786

PATIENT
  Age: 75 Year
  Sex: Male

DRUGS (19)
  1. TAMSULOSIN HCL [Concomitant]
     Route: 065
  2. BERODUAL [Concomitant]
     Route: 065
  3. LEVOFLOXACIN [Suspect]
     Indication: CHRONIC OBSTRUCTIVE PULMONARY DISEASE
     Dosage: ONCE
     Route: 042
     Dates: start: 20111101, end: 20111104
  4. CORTISONE ACETATE [Concomitant]
     Route: 065
  5. REPROTEROL [Concomitant]
     Route: 065
     Dates: start: 20111101, end: 20111105
  6. IBUPROFEN [Concomitant]
     Route: 065
  7. ENOXAPARIN [Concomitant]
     Route: 065
     Dates: start: 20111101
  8. PREDNISOLONE [Concomitant]
     Route: 065
     Dates: start: 20111101
  9. BUDESONIDE [Concomitant]
     Route: 065
  10. ALL OTHER THERAPEUTIC PRODUCT [Concomitant]
  11. CANDESARTAN CILEXETIL [Concomitant]
     Route: 065
     Dates: start: 20111101
  12. TORSEMIDE [Concomitant]
     Route: 065
  13. ZOLPIDEM [Concomitant]
     Route: 065
  14. LACTULOSE [Concomitant]
     Route: 065
  15. THEOPHYLLINE [Concomitant]
     Route: 065
  16. ALLOPURINOL [Concomitant]
     Route: 065
  17. PANTOPRAZOLE [Concomitant]
     Route: 065
  18. SPIRIVA [Concomitant]
     Route: 065
  19. SIMVASTATIN [Concomitant]
     Route: 065

REACTIONS (6)
  - PAIN IN EXTREMITY [None]
  - HAEMATOMA [None]
  - TENDON RUPTURE [None]
  - TENDON PAIN [None]
  - GAIT DISTURBANCE [None]
  - OEDEMA PERIPHERAL [None]
